FAERS Safety Report 13539764 (Version 1)
Quarter: 2017Q2

REPORT INFORMATION
  Report Type: Report from Study
  Country: FR (occurrence: FR)
  Receive Date: 20170512
  Receipt Date: 20170512
  Transmission Date: 20170830
  Serious: Yes (Hospitalization)
  Sender: FDA-Public Use
  Company Number: FR-ASTRAZENECA-2017SE41600

PATIENT
  Age: 82 Year
  Sex: Male
  Weight: 59 kg

DRUGS (4)
  1. LERCANIDIPINE [Concomitant]
     Active Substance: LERCANIDIPINE
     Dates: start: 20170301
  2. MEDI4736 [Suspect]
     Active Substance: DURVALUMAB
     Indication: GASTROINTESTINAL NEOPLASM
     Route: 042
     Dates: start: 20170214, end: 20170328
  3. RAMUCIRUMAB [Suspect]
     Active Substance: RAMUCIRUMAB
     Indication: GASTROINTESTINAL NEOPLASM
     Route: 042
     Dates: start: 20170214, end: 20170328
  4. ATENOLOL. [Concomitant]
     Active Substance: ATENOLOL
     Dates: start: 20170208

REACTIONS (3)
  - Gastrointestinal haemorrhage [Not Recovered/Not Resolved]
  - Lipase increased [Recovered/Resolved]
  - Subileus [Not Recovered/Not Resolved]

NARRATIVE: CASE EVENT DATE: 20170325
